FAERS Safety Report 5259813-9 (Version None)
Quarter: 2007Q1

REPORT INFORMATION
  Report Type: 
  Country: None (occurrence: None)
  Receive Date: 20070309
  Receipt Date: 20070307
  Transmission Date: 20070707
  Serious: Yes (Death)
  Sender: FDA-Public Use
  Company Number: US-PURDUE-USA_2007_0026694

PATIENT
  Age: 63 Year
  Sex: Male

DRUGS (1)
  1. OXYIR [Suspect]
     Indication: DRUG USE FOR UNKNOWN INDICATION
     Dosage: 5 MG, SEE TEXT
     Route: 048

REACTIONS (1)
  - NEOPLASM MALIGNANT [None]
